FAERS Safety Report 11691064 (Version 3)
Quarter: 2016Q2

REPORT INFORMATION
  Report Type: Spontaneous
  Country: US (occurrence: US)
  Receive Date: 20151102
  Receipt Date: 20160414
  Transmission Date: 20160815
  Serious: No
  Sender: FDA-Public Use
  Company Number: US-MDT-ADR-2015-02065

PATIENT
  Age: 53 Year
  Sex: Female

DRUGS (1)
  1. BACLOFEN. [Suspect]
     Active Substance: BACLOFEN
     Dosage: 4000MCG/DAY
     Route: 037
     Dates: start: 20130205, end: 20151028

REACTIONS (1)
  - No therapeutic response [Unknown]
